FAERS Safety Report 9278656 (Version 3)
Quarter: 2013Q4

REPORT INFORMATION
  Report Type: Spontaneous
  Country: US (occurrence: US)
  Receive Date: 20130508
  Receipt Date: 20131206
  Transmission Date: 20140711
  Serious: No
  Sender: FDA-Public Use
  Company Number: US-PFIZER INC-2013141308

PATIENT
  Age: 67 Year
  Sex: Female
  Weight: 67.6 kg

DRUGS (2)
  1. XELJANZ [Suspect]
     Indication: RHEUMATOID ARTHRITIS
     Dosage: 5 MG, 2X/DAY
     Route: 048
     Dates: start: 20130227
  2. XELJANZ [Suspect]
     Indication: ARTHRITIS
     Dosage: 5 MG, 2X/DAY
     Route: 048
     Dates: start: 2013, end: 2013

REACTIONS (2)
  - Pollakiuria [Unknown]
  - Drug hypersensitivity [Unknown]
